FAERS Safety Report 10398320 (Version 1)
Quarter: 2014Q3

REPORT INFORMATION
  Report Type: Spontaneous
  Country: US (occurrence: None)
  Receive Date: 20140818
  Receipt Date: 20140818
  Transmission Date: 20150326
  Serious: No
  Sender: FDA-Public Use
  Company Number: None

PATIENT
  Sex: Male
  Weight: 70.31 kg

DRUGS (3)
  1. TOPAMAX GENERIC [Suspect]
     Active Substance: TOPIRAMATE
  2. DEPAKOTE GENERIC [Suspect]
     Active Substance: DIVALPROEX SODIUM
  3. TEGRETOL GENERIC [Suspect]
     Active Substance: CARBAMAZEPINE

REACTIONS (2)
  - Drug ineffective [None]
  - Product substitution issue [None]
